FAERS Safety Report 18354647 (Version 1)
Quarter: 2020Q4

REPORT INFORMATION
  Report Type: Other
  Country: NL (occurrence: NL)
  Receive Date: 20201007
  Receipt Date: 20201007
  Transmission Date: 20210114
  Serious: Yes (Hospitalization)
  Sender: FDA-Public Use
  Company Number: NL-COREPHARMA LLC-2092501

PATIENT
  Age: 59 Year
  Sex: Female

DRUGS (4)
  1. VALSARTAN. [Concomitant]
     Active Substance: VALSARTAN
     Route: 065
  2. SODIUM AND POTASSIUM SUPPLEMENTS [Concomitant]
     Route: 048
  3. EPLERENONE. [Suspect]
     Active Substance: EPLERENONE
     Indication: HYPERTENSION
     Route: 065
  4. ENALAPRIL [Concomitant]
     Active Substance: ENALAPRIL
     Route: 065

REACTIONS (1)
  - Drug ineffective [Unknown]
